FAERS Safety Report 10727825 (Version 1)
Quarter: 2015Q1

REPORT INFORMATION
  Report Type: Spontaneous
  Country: JP (occurrence: JP)
  Receive Date: 20150121
  Receipt Date: 20150121
  Transmission Date: 20150721
  Serious: Yes (Other)
  Sender: FDA-Public Use
  Company Number: JP-GLAXOSMITHKLINE-JP2015JPN006056

PATIENT
  Age: 8 Year
  Sex: Female

DRUGS (1)
  1. RELENZA [Suspect]
     Active Substance: ZANAMIVIR
     Indication: INFLUENZA
     Dosage: UNK
     Route: 055
     Dates: start: 20150114, end: 20150115

REACTIONS (2)
  - Body temperature decreased [Unknown]
  - Hypothermia [Unknown]

NARRATIVE: CASE EVENT DATE: 20150114
